FAERS Safety Report 6534624-2 (Version None)
Quarter: 2010Q1

REPORT INFORMATION
  Report Type: 
  Country: None (occurrence: None)
  Receive Date: 20100112
  Receipt Date: 20100106
  Transmission Date: 20100710
  Serious: Yes (Hospitalization, Other)
  Sender: FDA-Public Use
  Company Number: B0624203A

PATIENT
  Sex: Female
  Weight: 41 kg

DRUGS (24)
  1. ALKERAN [Suspect]
     Indication: STEM CELL TRANSPLANT
     Dosage: 140MG PER DAY
     Route: 042
     Dates: start: 20090907, end: 20090907
  2. GRAN [Suspect]
     Indication: DRUG USE FOR UNKNOWN INDICATION
     Route: 058
     Dates: start: 20090914, end: 20090920
  3. NASEA [Concomitant]
     Route: 042
     Dates: start: 20090907, end: 20090907
  4. FLUCONAL [Concomitant]
     Route: 048
     Dates: start: 20090907, end: 20090914
  5. PYDOXAL [Concomitant]
     Route: 048
     Dates: start: 20090907, end: 20090915
  6. BAKTAR [Concomitant]
     Route: 048
     Dates: start: 20090907, end: 20090914
  7. ZOVIRAX [Concomitant]
     Route: 048
     Dates: start: 20090907, end: 20090914
  8. CRAVIT [Concomitant]
     Route: 048
     Dates: start: 20090907, end: 20090914
  9. CALTAN [Concomitant]
     Route: 048
     Dates: start: 20090907, end: 20090915
  10. OMEPRAL [Concomitant]
     Route: 048
     Dates: start: 20090907
  11. URSO 250 [Concomitant]
     Route: 048
     Dates: start: 20090907, end: 20090914
  12. ISCOTIN [Concomitant]
     Route: 048
     Dates: start: 20090907, end: 20090914
  13. ALFAROL [Concomitant]
     Route: 048
     Dates: start: 20090907, end: 20090915
  14. HAPTOGLOBIN [Concomitant]
     Route: 042
     Dates: start: 20090909, end: 20090909
  15. MINOCYCLINE HYDROCHLORIDE [Concomitant]
     Route: 042
     Dates: start: 20090914, end: 20090920
  16. FUNGUARD [Concomitant]
     Route: 042
     Dates: start: 20090914, end: 20091005
  17. FIRSTCIN [Concomitant]
     Dates: start: 20090914, end: 20090918
  18. GLOVENIN-I [Concomitant]
     Dates: start: 20090914, end: 20090916
  19. MEROPEN [Concomitant]
     Route: 042
     Dates: start: 20090918, end: 20091006
  20. DALACIN [Concomitant]
     Route: 042
     Dates: start: 20090918, end: 20091006
  21. PREDONINE [Concomitant]
     Dates: start: 20090922, end: 20091005
  22. SOLU-MEDROL [Concomitant]
     Route: 042
     Dates: start: 20090920, end: 20090921
  23. FUROSEMIDE [Concomitant]
     Dates: start: 20091023, end: 20091127
  24. PAXIL [Concomitant]
     Route: 048
     Dates: start: 20091029

REACTIONS (4)
  - ENGRAFTMENT SYNDROME [None]
  - FEBRILE NEUTROPENIA [None]
  - GENERALISED OEDEMA [None]
  - RESPIRATORY FAILURE [None]
